FAERS Safety Report 7264084-8 (Version None)
Quarter: 2011Q1

REPORT INFORMATION
  Report Type: 
  Country: None (occurrence: None)
  Receive Date: 20110130
  Receipt Date: 20101230
  Transmission Date: 20110831
  Serious: No
  Sender: FDA-Public Use
  Company Number: US-ABBOTT-11P-163-0694646-00

PATIENT
  Age: 36 Year
  Sex: Female

DRUGS (2)
  1. BIRTH CONTROL [Concomitant]
     Indication: PRODUCT USED FOR UNKNOWN INDICATION
     Dosage: DAILY
  2. HUMIRA [Suspect]
     Indication: CROHN'S DISEASE
     Dates: start: 20101001

REACTIONS (4)
  - FATIGUE [None]
  - ALOPECIA [None]
  - PRURITUS [None]
  - HEADACHE [None]
